FAERS Safety Report 8145148-3 (Version None)
Quarter: 2012Q1

REPORT INFORMATION
  Report Type: 
  Country: None (occurrence: None)
  Receive Date: 20120217
  Receipt Date: 20120213
  Transmission Date: 20120608
  Serious: Yes (Death, Hospitalization, Other)
  Sender: FDA-Public Use
  Company Number: PHHY2012MX012607

PATIENT
  Sex: Female

DRUGS (1)
  1. RASILEZ [Suspect]
     Indication: HYPERTENSION
     Dosage: 1 DF/DAY
     Dates: start: 20110101

REACTIONS (4)
  - CARDIAC FAILURE [None]
  - HYPOXIA [None]
  - RENAL IMPAIRMENT [None]
  - GENERAL PHYSICAL HEALTH DETERIORATION [None]
